FAERS Safety Report 8968909 (Version 1)
Quarter: 2012Q4

REPORT INFORMATION
  Report Type: Spontaneous
  Country: AU (occurrence: None)
  Receive Date: 20121207
  Receipt Date: 20121207
  Transmission Date: 20130627
  Serious: Yes (Other)
  Sender: FDA-Public Use
  Company Number: 2012P1065873

PATIENT
  Age: 60 Year
  Sex: Male

DRUGS (2)
  1. CEFTRIAXONE [Suspect]
     Indication: LEPTOSPIROSIS
     Route: 042
  2. BENZYLPENICILLIN [Suspect]
     Route: 042

REACTIONS (2)
  - Jarisch-Herxheimer reaction [None]
  - Hypertension [None]
